FAERS Safety Report 7379135-X (Version None)
Quarter: 2011Q1

REPORT INFORMATION
  Report Type: 
  Country: None (occurrence: None)
  Receive Date: 20110328
  Receipt Date: 20110315
  Transmission Date: 20110831
  Serious: Yes (Hospitalization, Other)
  Sender: FDA-Public Use
  Company Number: PHHY2011US01346

PATIENT
  Sex: Female
  Weight: 48 kg

DRUGS (13)
  1. EXJADE [Suspect]
     Dosage: 750 MG, DAILY
     Route: 048
  2. CYMBALTA [Concomitant]
     Dosage: 60 MG, QD
     Route: 048
  3. HYDREA [Concomitant]
     Dosage: 1500 MG, QD
     Route: 048
  4. LOVENOX [Concomitant]
     Dosage: 30 MG, QD
     Route: 058
  5. DILAUDID [Concomitant]
     Dosage: 8 MG, QD
     Route: 042
  6. PROTONIX [Concomitant]
     Dosage: 40 MG, QD
     Route: 048
  7. ATIVAN [Concomitant]
     Dosage: 1 MG, QD
     Route: 048
  8. MS CONTIN [Concomitant]
     Dosage: 100 MG, QD
     Route: 048
  9. FOLIC ACID [Concomitant]
     Dosage: 1 MG, QD
     Route: 048
  10. EXJADE [Suspect]
     Indication: SICKLE CELL ANAEMIA
     Dosage: 1250 MG, DAILY
     Dates: start: 20070411, end: 20070420
  11. MOTRIN [Concomitant]
     Dosage: 800 MG, QD
     Route: 048
  12. LACTULOSE [Concomitant]
     Dosage: 20 MG, QD
     Route: 048
  13. SENOKOT [Concomitant]
     Dosage: UNK
     Route: 048

REACTIONS (2)
  - PYREXIA [None]
  - BACTERIAL SEPSIS [None]
